FAERS Safety Report 9508226 (Version 1)
Quarter: 2013Q3

REPORT INFORMATION
  Report Type: Spontaneous
  Country: US (occurrence: US)
  Receive Date: 20130909
  Receipt Date: 20130909
  Transmission Date: 20140515
  Serious: No
  Sender: FDA-Public Use
  Company Number: US-PFIZER INC-2013258587

PATIENT
  Sex: Male
  Weight: 59 kg

DRUGS (2)
  1. ZOLOFT [Suspect]
     Indication: ANXIETY
     Dosage: 50 MG, UNK
     Route: 048
  2. ZOLOFT [Suspect]
     Dosage: 100 MG, UNK
     Route: 048
     Dates: start: 20130906

REACTIONS (1)
  - Dizziness [Unknown]
